FAERS Safety Report 20608518 (Version 1)
Quarter: 2022Q1

REPORT INFORMATION
  Report Type: Spontaneous
  Country: BE (occurrence: BE)
  Receive Date: 20220317
  Receipt Date: 20220317
  Transmission Date: 20220424
  Serious: Yes (Disabling, Congenital Anomaly, Other)
  Sender: FDA-Public Use
  Company Number: BE-ABBVIE-22K-013-4320049-00

PATIENT

DRUGS (1)
  1. VALPROATE SODIUM [Suspect]
     Active Substance: VALPROATE SODIUM
     Indication: Maternal exposure timing unspecified
     Route: 064

REACTIONS (9)
  - Dysmorphism [Unknown]
  - Developmental delay [Unknown]
  - Strabismus [Unknown]
  - Ear, nose and throat disorder [Unknown]
  - Ear, nose and throat disorder [Unknown]
  - Ear, nose and throat disorder [Unknown]
  - Autism spectrum disorder [Unknown]
  - Disability [Unknown]
  - Foetal exposure during pregnancy [Unknown]
